FAERS Safety Report 9754620 (Version 1)
Quarter: 2013Q4

REPORT INFORMATION
  Report Type: Spontaneous
  Country: US (occurrence: US)
  Receive Date: 20131213
  Receipt Date: 20131213
  Transmission Date: 20140711
  Serious: No
  Sender: FDA-Public Use
  Company Number: US-GLAXOSMITHKLINE-A1002802A

PATIENT
  Age: 73 Year
  Sex: Female
  Weight: 65 kg

DRUGS (14)
  1. EQUATE NTS 14MG, CLEAR [Suspect]
     Indication: EX-TOBACCO USER
     Dates: start: 20121109, end: 20121115
  2. ADVAIR [Concomitant]
  3. COMBIVENT [Concomitant]
  4. DIGOXIN [Concomitant]
  5. FUROSEMIDE [Concomitant]
  6. MAGNESIUM OXIDE [Concomitant]
  7. METOPROLOL TARTRATE [Concomitant]
  8. NITROSTAT [Concomitant]
  9. PRADAXA [Concomitant]
  10. PREDNISONE [Concomitant]
  11. PRILOSEC [Concomitant]
  12. SIMVASTATIN [Concomitant]
  13. TYLENOL [Concomitant]
  14. VITAMIN D [Concomitant]

REACTIONS (5)
  - Application site erythema [Recovered/Resolved]
  - Application site pruritus [Recovered/Resolved]
  - Application site warmth [Recovered/Resolved]
  - Application site papules [Recovered/Resolved]
  - Application site irritation [Unknown]
